FAERS Safety Report 15848835 (Version 2)
Quarter: 2019Q3

REPORT INFORMATION
  Report Type: Spontaneous
  Country: US (occurrence: US)
  Receive Date: 20190121
  Receipt Date: 20190715
  Transmission Date: 20191004
  Serious: No
  Sender: FDA-Public Use
  Company Number: US-PFIZER INC-2019024549

PATIENT
  Sex: Male
  Weight: 98.7 kg

DRUGS (3)
  1. ZOLPIDEM [Suspect]
     Active Substance: ZOLPIDEM TARTRATE
     Dosage: UNK
  2. CIPROFLOXACIN. [Suspect]
     Active Substance: CIPROFLOXACIN
     Dosage: UNK
  3. FLECAINIDE [Suspect]
     Active Substance: FLECAINIDE
     Dosage: UNK

REACTIONS (1)
  - Drug hypersensitivity [Unknown]
